FAERS Safety Report 17141426 (Version 2)
Quarter: 2019Q4

REPORT INFORMATION
  Report Type: Spontaneous
  Country: DE (occurrence: DE)
  Receive Date: 20191211
  Receipt Date: 20191213
  Transmission Date: 20200122
  Serious: Yes (Other)
  Sender: FDA-Public Use
  Company Number: DE-PFIZER INC-2019531614

PATIENT
  Age: 80 Year
  Sex: Female
  Weight: 83 kg

DRUGS (3)
  1. RAMIPRIL. [Suspect]
     Active Substance: RAMIPRIL
     Indication: HYPERTENSION
     Dosage: 1-0-1
     Route: 048
  2. EBRANTIL [URAPIDIL] [Interacting]
     Active Substance: URAPIDIL
     Indication: HYPERTENSION
     Dosage: 0-0-1 (AS NEEDED WHEN BLOOD PRESSURE IS HIGH)
     Route: 048
     Dates: start: 201911, end: 201911
  3. CARVEDILOL. [Concomitant]
     Active Substance: CARVEDILOL
     Indication: HYPERTENSION
     Dosage: 1,5-0-1,5
     Route: 048

REACTIONS (2)
  - Arrhythmia [Recovered/Resolved]
  - Drug interaction [Unknown]

NARRATIVE: CASE EVENT DATE: 201911
